FAERS Safety Report 8053905-7 (Version None)
Quarter: 2012Q1

REPORT INFORMATION
  Report Type: 
  Country: None (occurrence: None)
  Receive Date: 20120118
  Receipt Date: 20120109
  Transmission Date: 20120608
  Serious: Yes (Other)
  Sender: FDA-Public Use
  Company Number: US-ABBOTT-12P-163-0893714-00

PATIENT

DRUGS (1)
  1. NIMBEX [Suspect]
     Indication: PRODUCT USED FOR UNKNOWN INDICATION
     Dosage: 20MG/10ML

REACTIONS (1)
  - DELAYED RECOVERY FROM ANAESTHESIA [None]
